FAERS Safety Report 9327568 (Version 1)
Quarter: 2013Q2

REPORT INFORMATION
  Report Type: Spontaneous
  Country: US (occurrence: US)
  Receive Date: 20130604
  Receipt Date: 20130604
  Transmission Date: 20140414
  Serious: No
  Sender: FDA-Public Use
  Company Number: US-PFIZER INC-2013166978

PATIENT
  Age: 63 Year
  Sex: Female
  Weight: 65.8 kg

DRUGS (2)
  1. PREMARIN [Suspect]
     Indication: HORMONE REPLACEMENT THERAPY
     Dosage: 1.25 MG, 1X/DAY
     Route: 048
     Dates: start: 1995
  2. HYDROCHLOROTHIAZIDE/TRIAMTERENE [Concomitant]
     Indication: HYPERTENSION
     Dosage: TRIAMTERENE/HYDROCHLOROTHIAZIDE 37.5/25MG 1X/DAY

REACTIONS (6)
  - Gastrointestinal pain [Not Recovered/Not Resolved]
  - Renal pain [Not Recovered/Not Resolved]
  - Swelling [Not Recovered/Not Resolved]
  - Product quality issue [Unknown]
  - Counterfeit drug administered [Unknown]
  - Drug ineffective [Unknown]
